FAERS Safety Report 20022737 (Version 1)
Quarter: 2021Q4

REPORT INFORMATION
  Report Type: Spontaneous
  Country: US (occurrence: US)
  Receive Date: 20211102
  Receipt Date: 20211102
  Transmission Date: 20220304
  Serious: No
  Sender: FDA-Public Use
  Company Number: US-drreddys-SPO/USA/21/0142926

PATIENT
  Age: 69 Year
  Sex: Female
  Weight: 67.95 kg

DRUGS (1)
  1. HABITROL [Suspect]
     Active Substance: NICOTINE
     Indication: Tobacco user
     Route: 062
     Dates: start: 2015

REACTIONS (4)
  - Nightmare [Unknown]
  - Expired product administered [Unknown]
  - Treatment noncompliance [Unknown]
  - Underdose [Unknown]
